FAERS Safety Report 10723604 (Version 1)
Quarter: 2015Q1

REPORT INFORMATION
  Report Type: Spontaneous
  Country: US (occurrence: None)
  Receive Date: 20150114
  Receipt Date: 20150114
  Transmission Date: 20150721
  Serious: Yes (Hospitalization)
  Sender: FDA-Public Use
  Company Number: 2015-US-000185

PATIENT
  Age: 50 Year
  Sex: Female

DRUGS (11)
  1. FETZIMA [Concomitant]
     Active Substance: LEVOMILNACIPRAN HYDROCHLORIDE
  2. LEVEMIR [Concomitant]
     Active Substance: INSULIN DETEMIR
  3. LEVOTHYROXINE SODIUM. [Concomitant]
     Active Substance: LEVOTHYROXINE SODIUM
  4. LISINOPRIL. [Concomitant]
     Active Substance: LISINOPRIL
  5. ABILIFY [Concomitant]
     Active Substance: ARIPIPRAZOLE
  6. LOVASTATIN. [Concomitant]
     Active Substance: LOVASTATIN
  7. ZOLOFT [Concomitant]
     Active Substance: SERTRALINE HYDROCHLORIDE
  8. LAMOTRIGINE. [Concomitant]
     Active Substance: LAMOTRIGINE
  9. FOCALIN (DEXMETHYPHENIDATE HYDROCHLORIDE) [Concomitant]
  10. NOVOLOG [Concomitant]
     Active Substance: INSULIN ASPART
  11. XYREM [Suspect]
     Active Substance: SODIUM OXYBATE
     Indication: NARCOLEPSY
     Route: 048
     Dates: start: 201310, end: 2013

REACTIONS (4)
  - Coronary artery occlusion [None]
  - Angina pectoris [None]
  - Weight decreased [None]
  - Gastric banding [None]

NARRATIVE: CASE EVENT DATE: 2014
